FAERS Safety Report 8249413-0 (Version None)
Quarter: 2012Q2

REPORT INFORMATION
  Report Type: 
  Country: None (occurrence: None)
  Receive Date: 20120402
  Receipt Date: 20120323
  Transmission Date: 20120825
  Serious: Yes (Hospitalization)
  Sender: FDA-Public Use
  Company Number: US-BAYER-2011-076212

PATIENT
  Age: 26 Year
  Sex: Female
  Weight: 49.887 kg

DRUGS (10)
  1. YASMIN [Suspect]
     Indication: PREMENSTRUAL SYNDROME
  2. ELAVIL [Concomitant]
     Indication: BIPOLAR DISORDER
     Dosage: 100 MG, UNK
     Dates: start: 20080701
  3. YAZ [Suspect]
     Indication: PREMENSTRUAL SYNDROME
  4. YASMIN [Suspect]
  5. YASMIN [Suspect]
     Indication: CONTRACEPTION
     Dosage: UNK
     Route: 048
     Dates: start: 20010101, end: 20100201
  6. YAZ [Suspect]
     Indication: CONTRACEPTION
     Dosage: UNK
     Route: 048
     Dates: start: 20010101, end: 20100217
  7. YAZ [Suspect]
  8. ELAVIL [Concomitant]
     Indication: SLEEP DISORDER THERAPY
  9. ZANAFLEX [Concomitant]
     Indication: MUSCLE SPASMS
     Dosage: 6 MG, PRN
     Dates: start: 20080101
  10. FIORICET [Concomitant]
     Indication: HEADACHE
     Dosage: UNK
     Dates: start: 20040101

REACTIONS (3)
  - INJURY [None]
  - MENTAL DISORDER [None]
  - DEEP VEIN THROMBOSIS [None]
